FAERS Safety Report 16730623 (Version 1)
Quarter: 2019Q3

REPORT INFORMATION
  Report Type: Spontaneous
  Country: US (occurrence: US)
  Receive Date: 20190822
  Receipt Date: 20190822
  Transmission Date: 20191005
  Serious: Yes (Hospitalization)
  Sender: FDA-Public Use
  Company Number: US-JNJFOC-20190818929

PATIENT
  Sex: Male

DRUGS (5)
  1. POTASSIUM CITRATE. [Concomitant]
     Active Substance: POTASSIUM CITRATE
  2. XARELTO [Suspect]
     Active Substance: RIVAROXABAN
     Indication: CEREBROVASCULAR ACCIDENT PROPHYLAXIS
  3. XARELTO [Suspect]
     Active Substance: RIVAROXABAN
     Indication: ATRIAL FIBRILLATION
     Route: 048
     Dates: start: 201803
  4. METOPROLOL. [Concomitant]
     Active Substance: METOPROLOL
  5. ALOPURINOL [Concomitant]
     Active Substance: ALLOPURINOL

REACTIONS (2)
  - Skin laceration [Recovered/Resolved]
  - Coagulation time prolonged [Recovered/Resolved]
